FAERS Safety Report 4422832-6 (Version None)
Quarter: 2004Q3

REPORT INFORMATION
  Report Type: 
  Country: None (occurrence: None)
  Receive Date: 20040805
  Receipt Date: 20040719
  Transmission Date: 20050211
  Serious: Yes (Disabling)
  Sender: FDA-Public Use
  Company Number: 200212999

PATIENT
  Age: 51 Year
  Sex: Female
  Weight: 48.9885 kg

DRUGS (2)
  1. BOTOX [Suspect]
     Indication: SKIN WRINKLING
     Dosage: 155 UNTIS PRN IM
     Route: 030
     Dates: start: 20020618
  2. HYALAFORM [Concomitant]

REACTIONS (24)
  - BURNING SENSATION [None]
  - CANDIDIASIS [None]
  - DYSPEPSIA [None]
  - DYSPHAGIA [None]
  - DYSPHONIA [None]
  - FEELING ABNORMAL [None]
  - GLOSSODYNIA [None]
  - HYPOAESTHESIA [None]
  - INTERVERTEBRAL DISC INJURY [None]
  - JAW DISORDER [None]
  - LARYNGEAL OEDEMA [None]
  - MUSCLE TIGHTNESS [None]
  - MUSCULAR WEAKNESS [None]
  - MUSCULOSKELETAL DISORDER [None]
  - MUSCULOSKELETAL STIFFNESS [None]
  - NEURALGIA [None]
  - ORAL DISCOMFORT [None]
  - PARAESTHESIA [None]
  - RADICULOPATHY [None]
  - SENSATION OF FOREIGN BODY [None]
  - THIRST [None]
  - THROAT IRRITATION [None]
  - TONGUE DISORDER [None]
  - TONGUE DRY [None]
